FAERS Safety Report 19350522 (Version 1)
Quarter: 2021Q2

REPORT INFORMATION
  Report Type: Report from Study
  Country: None (occurrence: US)
  Receive Date: 20210531
  Receipt Date: 20210531
  Transmission Date: 20210717
  Serious: Yes (Hospitalization, Other)
  Sender: FDA-Public Use
  Company Number: US-ABBVIE-21K-163-3903436-00

PATIENT
  Age: 65 Year
  Sex: Female
  Weight: 81.72 kg

DRUGS (1)
  1. HUMIRA [Suspect]
     Active Substance: ADALIMUMAB
     Indication: PSORIASIS
     Dosage: CITRATE FREE
     Route: 058
     Dates: start: 2019, end: 202103

REACTIONS (8)
  - Dysstasia [Recovered/Resolved]
  - Delirium [Recovered/Resolved]
  - Immunodeficiency [Recovering/Resolving]
  - Sepsis [Recovering/Resolving]
  - Heart rate irregular [Recovering/Resolving]
  - Urinary tract infection [Recovered/Resolved]
  - Aphasia [Recovered/Resolved]
  - COVID-19 [Recovering/Resolving]

NARRATIVE: CASE EVENT DATE: 202103
